FAERS Safety Report 10496111 (Version 1)
Quarter: 2014Q4

REPORT INFORMATION
  Report Type: Report from Study
  Country: US (occurrence: US)
  Receive Date: 20141003
  Receipt Date: 20141003
  Transmission Date: 20150528
  Serious: Yes (Hospitalization)
  Sender: FDA-Public Use
  Company Number: US-GLAXOSMITHKLINE-US2014GSK000106

PATIENT
  Age: 26 Year
  Sex: Male

DRUGS (1)
  1. ELTROMBOPAG TABLET [Suspect]
     Active Substance: ELTROMBOPAG
     Dosage: 300 MG, UNK
     Route: 048
     Dates: start: 20140805

REACTIONS (6)
  - Nausea [None]
  - Back pain [None]
  - Vomiting [Recovered/Resolved]
  - Platelet count decreased [None]
  - Arthralgia [None]
  - Haemoglobin decreased [None]

NARRATIVE: CASE EVENT DATE: 20140828
